FAERS Safety Report 6292386-0 (Version None)
Quarter: 2009Q3

REPORT INFORMATION
  Report Type: 
  Country: None (occurrence: None)
  Receive Date: 20090731
  Receipt Date: 20090720
  Transmission Date: 20100115
  Serious: Yes (Other)
  Sender: FDA-Public Use
  Company Number: PHHY2009CN29789

PATIENT
  Age: 59 Year
  Sex: Female

DRUGS (10)
  1. PAMIDRONATE DISODIUM [Suspect]
     Indication: BONE DISORDER
     Dosage: 3600 MG, UNK
     Route: 042
  2. VINCRISTINE [Concomitant]
  3. ADRIAMYCIN RDF [Concomitant]
  4. DEXAMETHASONE [Concomitant]
  5. MELPHALAN [Concomitant]
  6. LOMUSTINE [Concomitant]
  7. CYCLOPHOSPHAMIDE [Concomitant]
  8. PREDNISONE [Concomitant]
  9. CISPLATIN [Concomitant]
  10. ETOPOSIDE [Concomitant]

REACTIONS (5)
  - INFECTION [None]
  - OSTEONECROSIS [None]
  - SWELLING [None]
  - TOOTH EXTRACTION [None]
  - TOOTHACHE [None]
